FAERS Safety Report 6739751-2 (Version None)
Quarter: 2010Q2

REPORT INFORMATION
  Report Type: 
  Country: None (occurrence: None)
  Receive Date: 20100525
  Receipt Date: 20100520
  Transmission Date: 20101027
  Serious: Yes (Hospitalization)
  Sender: FDA-Public Use
  Company Number: JP-B.I. PHARMACEUTICALS,INC./RIDGEFIELD-2010-BP-05385NB

PATIENT
  Sex: Male
  Weight: 56 kg

DRUGS (15)
  1. MICARDIS [Suspect]
     Indication: HYPERTENSION
     Dosage: 40 MG
     Route: 048
     Dates: end: 20100212
  2. MICARDIS [Suspect]
     Dosage: 80 MG
     Route: 048
     Dates: start: 20100213, end: 20100425
  3. AMLODIPINE [Concomitant]
     Indication: HYPERTENSION
     Dosage: 10 MG
     Route: 048
  4. ASPIRIN [Concomitant]
     Indication: ANGINA PECTORIS
     Dosage: 100 MG
     Route: 048
  5. ARTIST [Concomitant]
     Indication: HYPERTENSION
     Dosage: 5 MG
     Route: 048
  6. URSO 250 [Concomitant]
     Dosage: 600 MG
     Route: 048
  7. CATAPRES [Concomitant]
     Indication: BENIGN PROSTATIC HYPERPLASIA
     Dosage: 0.45 MG
     Route: 048
  8. TAKEPRON [Concomitant]
     Indication: REFLUX OESOPHAGITIS
     Dosage: 15 MG
     Route: 048
  9. CRESTOR [Concomitant]
     Indication: HYPERCHOLESTEROLAEMIA
     Dosage: 2.5 MG
     Route: 048
  10. MAGMITT [Concomitant]
     Indication: CONSTIPATION
     Dosage: 330 MG
     Route: 048
  11. PURSENNID [Concomitant]
     Indication: CONSTIPATION
     Dosage: 24 MG
     Route: 048
  12. AMOBAN [Concomitant]
     Indication: INSOMNIA
     Dosage: 7.5 MG
     Route: 048
  13. ARGAMATE [Concomitant]
     Indication: HYPERKALAEMIA
     Dosage: 50 G
     Route: 048
     Dates: start: 20091208
  14. DOXAZOSIN MESYLATE [Concomitant]
     Indication: HYPERTENSION
     Dosage: 2 MG
     Route: 048
     Dates: start: 20100215
  15. ENALAPRIL [Concomitant]
     Indication: HYPERTENSION
     Dosage: 5 MG
     Route: 048

REACTIONS (1)
  - HYPOGLYCAEMIC COMA [None]
